FAERS Safety Report 18865789 (Version 4)
Quarter: 2022Q4

REPORT INFORMATION
  Report Type: Spontaneous
  Country: US (occurrence: US)
  Receive Date: 20210208
  Receipt Date: 20221122
  Transmission Date: 20230113
  Serious: No
  Sender: FDA-Public Use
  Company Number: US-PFIZER INC-2018401810

PATIENT
  Age: 60 Year
  Sex: Female

DRUGS (4)
  1. PRISTIQ EXTENDED-RELEASE [Suspect]
     Active Substance: DESVENLAFAXINE SUCCINATE
     Dosage: 150 MG, 1X/DAY (THREE 50MG TABLETS ONE TIME DAILY)
     Route: 048
     Dates: start: 2017
  2. PRISTIQ EXTENDED-RELEASE [Suspect]
     Active Substance: DESVENLAFAXINE SUCCINATE
     Dosage: 150 MG, 1X/DAY (THREE 50MG TABLETS ONE TIME DAILY)
     Route: 048
     Dates: start: 2018
  3. PRISTIQ EXTENDED-RELEASE [Suspect]
     Active Substance: DESVENLAFAXINE SUCCINATE
     Dosage: 100 MG, 2X/DAY
  4. PRISTIQ EXTENDED-RELEASE [Suspect]
     Active Substance: DESVENLAFAXINE SUCCINATE
     Dosage: 50 MG, 2X/DAY(TWICE DAILY)

REACTIONS (2)
  - Confusional state [Unknown]
  - Incorrect dose administered [Unknown]
